FAERS Safety Report 10833762 (Version 1)
Quarter: 2015Q1

REPORT INFORMATION
  Report Type: Not Available
  Country: US (occurrence: US)
  Receive Date: 20150219
  Receipt Date: 20150219
  Transmission Date: 20150721
  Serious: Yes (Other)
  Sender: FDA-Public Use
  Company Number: US-CELGENE-163-21880-13113057

PATIENT

DRUGS (5)
  1. REVLIMID [Suspect]
     Active Substance: LENALIDOMIDE
     Indication: MANTLE CELL LYMPHOMA
     Route: 048
  2. RITUXIMAB [Suspect]
     Active Substance: RITUXIMAB
     Route: 065
  3. REVLIMID [Suspect]
     Active Substance: LENALIDOMIDE
     Route: 048
  4. REVLIMID [Suspect]
     Active Substance: LENALIDOMIDE
     Route: 048
  5. RITUXIMAB [Suspect]
     Active Substance: RITUXIMAB
     Indication: MANTLE CELL LYMPHOMA
     Route: 065

REACTIONS (16)
  - Anaemia [Unknown]
  - Cholangitis [Unknown]
  - Fatigue [Unknown]
  - Sinusitis [Unknown]
  - Bronchitis [Unknown]
  - Pneumonia [Unknown]
  - Neutropenia [Unknown]
  - Pulmonary embolism [Recovered/Resolved]
  - Rash [Unknown]
  - Upper respiratory tract infection [Unknown]
  - Thrombocytopenia [Unknown]
  - Mantle cell lymphoma [Unknown]
  - Deep vein thrombosis [Recovered/Resolved]
  - Serum sickness [Unknown]
  - Tumour flare [Unknown]
  - Urinary tract infection [Unknown]

NARRATIVE: CASE EVENT DATE: 2013
